FAERS Safety Report 15785437 (Version 3)
Quarter: 2019Q3

REPORT INFORMATION
  Report Type: Spontaneous
  Country: CA (occurrence: CA)
  Receive Date: 20190103
  Receipt Date: 20190924
  Transmission Date: 20191004
  Serious: Yes (Life-Threatening, Hospitalization)
  Sender: FDA-Public Use
  Company Number: CA-TEVA-2018-CA-993510

PATIENT
  Age: 16 Year
  Sex: Female
  Weight: 76 kg

DRUGS (12)
  1. ACETAMINOPHEN. [Interacting]
     Active Substance: ACETAMINOPHEN
     Indication: OVERDOSE
     Route: 048
  2. EPINEPHRINE. [Interacting]
     Active Substance: EPINEPHRINE
     Indication: HYPOTENSION
     Route: 050
  3. PRAZOSIN. [Interacting]
     Active Substance: PRAZOSIN
     Indication: OVERDOSE
  4. PRAZOSIN. [Interacting]
     Active Substance: PRAZOSIN
     Indication: NIGHTMARE
     Dosage: OVERDOSE (TOTAL 55G)
     Route: 048
  5. ACETAMINOPHEN. [Interacting]
     Active Substance: ACETAMINOPHEN
     Indication: OVERDOSE
     Dosage: EXTENDED RELEASE
     Route: 048
  6. NOREPINEPHRINE. [Interacting]
     Active Substance: NOREPINEPHRINE
     Indication: HYPOTENSION
     Route: 050
  7. EPINEPHRINE. [Interacting]
     Active Substance: EPINEPHRINE
     Indication: HYPOTENSION
     Route: 050
  8. NORMAL SALINE [Concomitant]
     Active Substance: SODIUM CHLORIDE
     Indication: HYPOTENSION
     Dosage: ADMINISTERED THRICE
     Route: 050
  9. PRAZOSIN. [Suspect]
     Active Substance: PRAZOSIN
     Indication: SLEEP DISORDER
     Dosage: REGULAR DOSE 2MG NIGHTLY
     Route: 048
  10. NAPROXEN. [Suspect]
     Active Substance: NAPROXEN
     Indication: OVERDOSE
     Dosage: TOTAL 55G
     Route: 048
  11. LACTATED RINGERS SOLUTION [Concomitant]
     Active Substance: CALCIUM CHLORIDE\POTASSIUM CHLORIDE\SODIUM CHLORIDE\SODIUM LACTATE
     Dosage: FIRST ADMINISTRATION
     Route: 050
  12. LACTATED RINGERS SOLUTION [Concomitant]
     Active Substance: CALCIUM CHLORIDE\POTASSIUM CHLORIDE\SODIUM CHLORIDE\SODIUM LACTATE
     Dosage: SECOND ADMINISTRATION
     Route: 050

REACTIONS (13)
  - Sinus tachycardia [Recovered/Resolved]
  - Electrocardiogram QT prolonged [Recovered/Resolved]
  - Drug interaction [Recovered/Resolved]
  - Somnolence [Recovered/Resolved]
  - Toxicity to various agents [Recovered/Resolved]
  - Vomiting [Recovered/Resolved]
  - Drug ineffective [Unknown]
  - Altered state of consciousness [Recovered/Resolved]
  - Hypotension [Recovered/Resolved]
  - Metabolic acidosis [Recovered/Resolved]
  - Overdose [Recovered/Resolved]
  - Renal impairment [Recovered/Resolved]
  - Hepatic function abnormal [Recovered/Resolved]
